FAERS Safety Report 5466104-X (Version None)
Quarter: 2007Q3

REPORT INFORMATION
  Report Type: 
  Country: None (occurrence: None)
  Receive Date: 20070924
  Receipt Date: 20070920
  Transmission Date: 20080115
  Serious: Yes (Death)
  Sender: FDA-Public Use
  Company Number: US-GENENTECH-246130

PATIENT
  Age: 81 Year
  Sex: Male
  Weight: 44.898 kg

DRUGS (3)
  1. ACTIVASE [Suspect]
     Indication: AORTIC THROMBOSIS
     Route: 040
  2. ACTIVASE [Suspect]
     Indication: PULMONARY EMBOLISM
     Route: 042
  3. WARFARIN SODIUM [Concomitant]
     Indication: DEEP VEIN THROMBOSIS
     Route: 065

REACTIONS (2)
  - DISEASE PROGRESSION [None]
  - MULTI-ORGAN FAILURE [None]
